FAERS Safety Report 14770189 (Version 2)
Quarter: 2018Q2

REPORT INFORMATION
  Report Type: Spontaneous
  Country: DK (occurrence: DK)
  Receive Date: 20180417
  Receipt Date: 20180531
  Transmission Date: 20180711
  Serious: Yes (Disabling, Other)
  Sender: FDA-Public Use
  Company Number: DK-PFIZER INC-2018149795

PATIENT
  Age: 54 Year
  Sex: Female

DRUGS (1)
  1. LESTID [Suspect]
     Active Substance: COLESTIPOL
     Indication: CROHN^S DISEASE
     Dosage: 5 G, DAILY
     Route: 048
     Dates: start: 1992

REACTIONS (3)
  - Gallbladder cancer [Not Recovered/Not Resolved]
  - Bile acid malabsorption [Unknown]
  - Weight decreased [Unknown]

NARRATIVE: CASE EVENT DATE: 20180214
